FAERS Safety Report 9895615 (Version 2)
Quarter: 2014Q1

REPORT INFORMATION
  Report Type: Spontaneous
  Country: US (occurrence: US)
  Receive Date: 20140213
  Receipt Date: 20140213
  Transmission Date: 20141002
  Serious: No
  Sender: FDA-Public Use
  Company Number: US-BRISTOL-MYERS SQUIBB COMPANY-17385501

PATIENT
  Age: 43 Year
  Sex: Female

DRUGS (1)
  1. ABATACEPT SUBQ INJECTION 125MG/ML [Suspect]
     Indication: RHEUMATOID ARTHRITIS
     Dosage: INTERRUPTED FOR TWO WEEKS AND RESUMED ON 12FEB13

REACTIONS (3)
  - Nasopharyngitis [Unknown]
  - Injection site reaction [Unknown]
  - Condition aggravated [Unknown]
